FAERS Safety Report 4782639-7 (Version None)
Quarter: 2005Q3

REPORT INFORMATION
  Report Type: 
  Country: None (occurrence: None)
  Receive Date: 20050929
  Receipt Date: 20050523
  Transmission Date: 20060218
  Serious: No
  Sender: FDA-Public Use
  Company Number: 405551

PATIENT
  Age: 76 Year
  Sex: Female

DRUGS (6)
  1. COREG [Suspect]
     Dosage: 6.25MG TWICE PER DAY
     Route: 048
     Dates: start: 20050407
  2. ALTACE [Concomitant]
  3. POTASSIUM [Concomitant]
  4. PLAVIX [Concomitant]
  5. LESCOL [Concomitant]
  6. ZETIA [Concomitant]

REACTIONS (2)
  - HEART RATE INCREASED [None]
  - NAUSEA [None]
